FAERS Safety Report 4354969-4 (Version None)
Quarter: 2004Q2

REPORT INFORMATION
  Report Type: 
  Country: None (occurrence: None)
  Receive Date: 20040510
  Receipt Date: 20040504
  Transmission Date: 20050107
  Serious: Yes (Hospitalization)
  Sender: FDA-Public Use
  Company Number: 200410994DE

PATIENT
  Age: 69 Year
  Sex: Female

DRUGS (6)
  1. DOCETAXEL [Suspect]
     Indication: BREAST CANCER
     Route: 042
     Dates: start: 20040114, end: 20040114
  2. ADRIAMYCIN PFS [Suspect]
     Indication: BREAST CANCER
     Dates: start: 20040114, end: 20040114
  3. CYCLOPHOSPHAMIDE [Suspect]
     Indication: BREAST CANCER
     Dates: start: 20040114, end: 20040114
  4. GRANOCYTE [Concomitant]
     Route: 058
     Dates: start: 20040115
  5. FORTECORTIN [Concomitant]
     Dates: start: 20040117
  6. CIPROBAY [Concomitant]
     Dates: start: 20040118

REACTIONS (3)
  - CONTUSION [None]
  - FALL [None]
  - TRAUMATIC BRAIN INJURY [None]
